FAERS Safety Report 16795188 (Version 1)
Quarter: 2019Q3

REPORT INFORMATION
  Report Type: Spontaneous
  Country: NO (occurrence: NO)
  Receive Date: 20190911
  Receipt Date: 20190911
  Transmission Date: 20191005
  Serious: Yes (Hospitalization, Other)
  Sender: FDA-Public Use
  Company Number: NO-PFIZER INC-2019388375

PATIENT
  Age: 44 Year
  Sex: Female

DRUGS (9)
  1. VAGIFEM [Concomitant]
     Active Substance: ESTRADIOL
     Dosage: INITIALLY 10 MICROGRAM DAILY FOR 14 DAYS, THEN 10 MICROGRAM TWICE PER WEEK.
     Route: 067
  2. OMEPRAZOLE. [Concomitant]
     Active Substance: OMEPRAZOLE
     Indication: PROPHYLAXIS AGAINST GASTROINTESTINAL ULCER
     Dosage: 20 MG, 1X/DAY
     Route: 048
  3. BENEPALI [Suspect]
     Active Substance: ETANERCEPT
     Indication: RHEUMATOID ARTHRITIS
     Dosage: 50 MG, WEEKLY
     Route: 058
     Dates: start: 201702, end: 201904
  4. METHOTREXATE SODIUM. [Suspect]
     Active Substance: METHOTREXATE SODIUM
     Indication: RHEUMATOID ARTHRITIS
     Dosage: INITIALLY 12,5 MG X 1 PER WEEK, INCREASED TO 20 MG X 1 AFTER BENEPALI WAS WITHDRAWN. PROBABLY A P...
     Route: 048
     Dates: start: 2010
  5. PARACETAMOL [Concomitant]
     Active Substance: ACETAMINOPHEN
     Indication: RHEUMATOID ARTHRITIS
     Dosage: 1 GRAM UP TO THREE TIMES PER DAY
     Route: 048
  6. IBUX [Concomitant]
     Active Substance: IBUPROFEN
     Indication: RHEUMATOID ARTHRITIS
     Route: 048
     Dates: end: 2019
  7. VAGIFEM [Concomitant]
     Active Substance: ESTRADIOL
     Dosage: 10 UG, 2X/WEEK
  8. METHOTREXATE SODIUM. [Suspect]
     Active Substance: METHOTREXATE SODIUM
     Dosage: 20 MG, WEEKLY
  9. FOLSYRE NAF [Concomitant]
     Active Substance: FOLIC ACID
     Dosage: 6 TABLETS A 1 MG ONCE WEEKLY, THE DAY AFTER ADMINISTRATION OF METHOTREXATE (POSSIBLY CHANGED TO T...
     Route: 048
     Dates: start: 2010

REACTIONS (1)
  - Soft tissue sarcoma [Recovering/Resolving]

NARRATIVE: CASE EVENT DATE: 2019
